FAERS Safety Report 16682720 (Version 5)
Quarter: 2021Q1

REPORT INFORMATION
  Report Type: Spontaneous
  Country: US (occurrence: US)
  Receive Date: 20190808
  Receipt Date: 20210113
  Transmission Date: 20210419
  Serious: No
  Sender: FDA-Public Use
  Company Number: US-PFIZER INC-2019336852

PATIENT
  Age: 69 Year
  Sex: Female

DRUGS (1)
  1. XELJANZ XR [Suspect]
     Active Substance: TOFACITINIB CITRATE
     Indication: ARTHRITIS
     Dosage: 11 MG, 1X/DAY (30?DAY SUPPLY)
     Route: 048

REACTIONS (4)
  - Oral disorder [Unknown]
  - Back pain [Unknown]
  - Gait disturbance [Unknown]
  - Drug hypersensitivity [Unknown]
